FAERS Safety Report 8342546-X (Version None)
Quarter: 2012Q2

REPORT INFORMATION
  Report Type: 
  Country: None (occurrence: None)
  Receive Date: 20120508
  Receipt Date: 20120427
  Transmission Date: 20120825
  Serious: No
  Sender: FDA-Public Use
  Company Number: US-BIOGENIDEC-2012BI015100

PATIENT
  Sex: Female

DRUGS (1)
  1. TYSABRI [Suspect]
     Indication: MULTIPLE SCLEROSIS
     Route: 042
     Dates: start: 20071108, end: 20120228

REACTIONS (4)
  - PYREXIA [None]
  - VISUAL IMPAIRMENT [None]
  - INFECTION [None]
  - FIBROMYALGIA [None]
